FAERS Safety Report 18651533 (Version 1)
Quarter: 2020Q4

REPORT INFORMATION
  Report Type: Spontaneous
  Country: IT (occurrence: IT)
  Receive Date: 20201223
  Receipt Date: 20201223
  Transmission Date: 20210114
  Serious: Yes (Hospitalization, Other)
  Sender: FDA-Public Use
  Company Number: IT-AUROBINDO-AUR-APL-2020-061994

PATIENT
  Age: 78 Year
  Sex: Female

DRUGS (2)
  1. CLODRONIC ACID [Suspect]
     Active Substance: CLODRONIC ACID
     Indication: OSTEOPOROSIS
     Dosage: 1 DOSAGE FORM, 15 DAYS
     Route: 030
     Dates: start: 2015
  2. RISEDRONATE [Suspect]
     Active Substance: RISEDRONATE SODIUM
     Indication: OSTEOPOROSIS
     Dosage: 35 MILLIGRAM, EVERY WEEK
     Route: 048
     Dates: start: 2015

REACTIONS (2)
  - Jaw fracture [Recovered/Resolved]
  - Osteonecrosis of jaw [Recovered/Resolved]

NARRATIVE: CASE EVENT DATE: 201902
